FAERS Safety Report 4560723-0 (Version None)
Quarter: 2005Q1

REPORT INFORMATION
  Report Type: 
  Country: None (occurrence: None)
  Receive Date: 20050121
  Receipt Date: 20050110
  Transmission Date: 20050727
  Serious: Yes (Hospitalization)
  Sender: FDA-Public Use
  Company Number: 2005CG00082

PATIENT
  Age: 87 Year
  Sex: Male

DRUGS (6)
  1. OMEPRAZOLE [Suspect]
     Dosage: 20 MG BID PO
     Route: 048
     Dates: start: 20030101
  2. EFFERALGAN [Suspect]
     Dosage: 1 GR TID PO
     Route: 048
     Dates: start: 20030101
  3. HEMI-DAONIL [Suspect]
     Dosage: 1.25 MG BID PO
     Route: 048
     Dates: start: 20000101
  4. RIMACTAN/SCH/ [Suspect]
     Dosage: 600 MG TID PO
     Route: 048
     Dates: start: 20041030
  5. AMOXICILLIN [Suspect]
     Dosage: 2 GR QID PO
     Route: 048
     Dates: start: 20041030
  6. OMIX [Suspect]
     Dosage: 0.4 MG QD PO
     Route: 048
     Dates: start: 19990101

REACTIONS (4)
  - CHOLESTASIS [None]
  - CYTOLYTIC HEPATITIS [None]
  - LYMPHOPENIA [None]
  - PRURITUS [None]
